FAERS Safety Report 6091827-1 (Version None)
Quarter: 2009Q1

REPORT INFORMATION
  Report Type: 
  Country: None (occurrence: None)
  Receive Date: 20090225
  Receipt Date: 20080722
  Transmission Date: 20090719
  Serious: No
  Sender: FDA-Public Use
  Company Number: A0738865A

PATIENT
  Age: 4 Month

DRUGS (2)
  1. VALTREX [Suspect]
     Dosage: 500MG THREE TIMES PER DAY
  2. VITAMIN TAB [Concomitant]

REACTIONS (1)
  - DRUG EXPOSURE VIA BREAST MILK [None]
